FAERS Safety Report 4704320-2 (Version None)
Quarter: 2005Q2

REPORT INFORMATION
  Report Type: 
  Country: None (occurrence: None)
  Receive Date: 20050628
  Receipt Date: 20050615
  Transmission Date: 20051028
  Serious: Yes (Other)
  Sender: FDA-Public Use
  Company Number: 2005089593

PATIENT
  Age: 71 Year
  Sex: Male

DRUGS (3)
  1. METHYLPREDNISOLONE SODIUM SUCCINATE [Suspect]
     Indication: PRURITUS
     Dosage: 80 MG (1 D) INTRAVENOUS
     Route: 042
     Dates: start: 20030901
  2. PREDNISONE [Suspect]
     Indication: PRURITUS
     Dosage: 20 MG (1 D)
     Dates: start: 20040203
  3. BETAMETHASONE [Suspect]
     Indication: ILL-DEFINED DISORDER
     Dosage: ORAL
     Route: 048
     Dates: start: 20040101, end: 20040101

REACTIONS (6)
  - ARRHYTHMIA [None]
  - BLOOD PRESSURE INCREASED [None]
  - INTERSTITIAL LUNG DISEASE [None]
  - PALPITATIONS [None]
  - PRURITUS [None]
  - PYREXIA [None]
